FAERS Safety Report 10020696 (Version 2)
Quarter: 2014Q1

REPORT INFORMATION
  Report Type: Report from Study
  Country: AU (occurrence: AU)
  Receive Date: 20140319
  Receipt Date: 20140319
  Transmission Date: 20141002
  Serious: Yes (Hospitalization)
  Sender: FDA-Public Use
  Company Number: AU-ROCHE-1101249

PATIENT
  Age: 59 Year
  Sex: Female
  Weight: 62.3 kg

DRUGS (26)
  1. OBINUTUZUMAB [Suspect]
     Indication: NON-HODGKIN^S LYMPHOMA UNSPECIFIED HISTOLOGY INDOLENT
     Dosage: LAST DOSE: 4 MG/ML, VOLUME 250 ML, DATE OF MOST RECENT DOSE PRIOR TO SAE: 20/JUL/2012
     Route: 042
     Dates: start: 20111221
  2. BENDAMUSTINE [Suspect]
     Indication: NON-HODGKIN^S LYMPHOMA UNSPECIFIED HISTOLOGY INDOLENT
     Dosage: DATE OF MOST RECENT DOSE PRIOR TO SAE: 16/MAY/2012, LAST DOSE 150 MG
     Route: 042
     Dates: start: 20111221
  3. CRESTOR [Concomitant]
     Indication: HYPERCHOLESTEROLAEMIA
  4. OSTELIN (AUSTRALIA) [Concomitant]
     Indication: OSTEOPENIA
  5. CALTRATE [Concomitant]
     Indication: OSTEOPENIA
  6. PARACETAMOL [Concomitant]
     Indication: INFUSION RELATED REACTION
     Route: 065
     Dates: start: 20111221, end: 20120720
  7. PARACETAMOL [Concomitant]
     Indication: PROPHYLAXIS
     Route: 065
     Dates: start: 20120828, end: 20120911
  8. PREDNISONE [Concomitant]
     Route: 065
     Dates: start: 20111221
  9. LORATADINE [Concomitant]
     Indication: INFUSION RELATED REACTION
     Route: 065
     Dates: start: 20111221, end: 20120720
  10. LORATADINE [Concomitant]
     Indication: PROPHYLAXIS
  11. ONDANSETRON [Concomitant]
     Indication: PROPHYLAXIS OF NAUSEA AND VOMITING
     Route: 065
     Dates: start: 20111221
  12. DEXAMETHASONE [Concomitant]
     Route: 065
     Dates: start: 20111222
  13. COLOXYL TABLETS (AUSTRALIA) [Concomitant]
     Indication: CONSTIPATION
     Route: 065
     Dates: start: 20120703, end: 20120713
  14. PANADOL [Concomitant]
     Indication: ABDOMINAL PAIN
     Route: 065
     Dates: start: 20120808, end: 20120814
  15. SYMBICORT [Concomitant]
     Indication: COUGH
     Route: 065
     Dates: start: 20120508
  16. ENDONE [Concomitant]
     Indication: ABDOMINAL PAIN
     Route: 065
     Dates: start: 20120810, end: 20120812
  17. MORPHINE [Concomitant]
     Indication: ABDOMINAL PAIN
     Route: 065
     Dates: start: 20120807, end: 20120809
  18. MORPHINE [Concomitant]
     Route: 065
     Dates: start: 20120827, end: 20120903
  19. PANADEINE FORTE [Concomitant]
     Indication: ABDOMINAL PAIN
     Route: 065
     Dates: start: 20120807, end: 20120807
  20. CLEXANE [Concomitant]
     Indication: DEEP VEIN THROMBOSIS
     Route: 065
     Dates: start: 20120810, end: 20120816
  21. CLEXANE [Concomitant]
     Route: 065
     Dates: start: 20120911, end: 20120914
  22. MAXOLON [Concomitant]
     Indication: NAUSEA
     Route: 065
     Dates: start: 20120522
  23. MAXOLON [Concomitant]
     Indication: VOMITING
  24. NIVESTIM [Concomitant]
     Indication: NEUTROPENIA
     Route: 065
     Dates: start: 20120906
  25. BISACODYL [Concomitant]
     Route: 065
     Dates: start: 20120829, end: 20120829
  26. FLEET ENEMA [Concomitant]
     Route: 065
     Dates: start: 20120910, end: 20120910

REACTIONS (2)
  - Cytomegalovirus infection [Unknown]
  - Cytomegalovirus chorioretinitis [Recovered/Resolved with Sequelae]
